FAERS Safety Report 24612708 (Version 2)
Quarter: 2024Q4

REPORT INFORMATION
  Report Type: Report from Study
  Country: FI (occurrence: FI)
  Receive Date: 20241113
  Receipt Date: 20241118
  Transmission Date: 20250114
  Serious: Yes (Hospitalization, Other)
  Sender: MYLAN
  Company Number: FI-MYLANLABS-2024M1101352

PATIENT
  Sex: Female

DRUGS (6)
  1. CLOZAPINE [Suspect]
     Active Substance: CLOZAPINE
     Indication: Schizophrenia
     Dosage: UNK
     Route: 065
     Dates: end: 2022
  2. CLOZAPINE [Suspect]
     Active Substance: CLOZAPINE
     Dosage: UNK, (START DATE: UNKNOWN DATE IN 2022)
     Route: 065
  3. CLOZAPINE [Suspect]
     Active Substance: CLOZAPINE
     Dosage: UNK
     Route: 065
     Dates: end: 202203
  4. CLOZAPINE [Suspect]
     Active Substance: CLOZAPINE
     Dosage: UNK, BID (100 MG IN THE MORNING AND 300 MG IN THE EVENING, START DATE: 28-MAY-2022)
     Route: 048
  5. OLANZAPINE [Suspect]
     Active Substance: OLANZAPINE
     Indication: Schizophrenia
     Dosage: 10 MILLIGRAM, BID (10 MG PLUS 0 MG PLUS 10 MG, START DATE: UNKNOWN DATE IN 2022)
     Route: 065
  6. LITHIUM CARBONATE [Concomitant]
     Active Substance: LITHIUM CARBONATE
     Dosage: UNK
     Route: 065

REACTIONS (5)
  - Psychotic disorder [Recovered/Resolved]
  - Drug ineffective [Recovered/Resolved]
  - Neutropenia [Recovered/Resolved]
  - White blood cell count decreased [Recovered/Resolved]
  - Off label use [Unknown]

NARRATIVE: CASE EVENT DATE: 20220101
